FAERS Safety Report 26137270 (Version 1)
Quarter: 2025Q4

REPORT INFORMATION
  Report Type: Report from Study
  Country: CN (occurrence: CN)
  Receive Date: 20251209
  Receipt Date: 20251209
  Transmission Date: 20260117
  Serious: Yes (Hospitalization)
  Sender: EISAI
  Company Number: CN-Eisai-EC-2025-201376

PATIENT
  Age: 62 Year
  Sex: Female
  Weight: 60.7 kg

DRUGS (7)
  1. ERIBULIN [Suspect]
     Active Substance: ERIBULIN
     Indication: Breast cancer
     Dosage: D1, D8 OF A 3 WEEK CYCLE
     Route: 042
     Dates: start: 20250409, end: 20251113
  2. ERIBULIN [Suspect]
     Active Substance: ERIBULIN
     Dosage: D1, D8 OF A 3 WEEK CYCLE
     Route: 042
     Dates: start: 20251201
  3. HERBALS\DIAMMONIUM GLYCYRRHIZINATE [Concomitant]
     Active Substance: HERBALS\DIAMMONIUM GLYCYRRHIZINATE
     Indication: Hepatobiliary disorder prophylaxis
     Route: 048
     Dates: start: 20250409
  4. CALCIUM CARBONATE\CHOLECALCIFEROL [Concomitant]
     Active Substance: CALCIUM CARBONATE\CHOLECALCIFEROL
     Indication: Mineral supplementation
     Route: 048
     Dates: start: 20250612
  5. SHOUHUI TONGBIAN [Concomitant]
     Indication: Constipation
     Route: 048
     Dates: start: 20251015
  6. DENOSUMAB [Concomitant]
     Active Substance: DENOSUMAB
     Indication: Prophylaxis
     Route: 058
     Dates: start: 20251121, end: 20251121
  7. RAFUTROMBOPAG OLAMINE [Concomitant]
     Active Substance: RAFUTROMBOPAG OLAMINE
     Indication: Prophylaxis
     Route: 048

REACTIONS (1)
  - Pneumonia [Recovered/Resolved]

NARRATIVE: CASE EVENT DATE: 20251127
